FAERS Safety Report 4940367-9 (Version None)
Quarter: 2006Q1

REPORT INFORMATION
  Report Type: 
  Country: None (occurrence: None)
  Receive Date: 20060310
  Receipt Date: 20060222
  Transmission Date: 20060701
  Serious: Yes (Life-Threatening, Hospitalization)
  Sender: FDA-Public Use
  Company Number: JP-MERCK-0602USA05649

PATIENT
  Age: 51 Year
  Sex: Male

DRUGS (5)
  1. ALDOMET [Suspect]
     Route: 048
  2. NIFEDIPINE [Suspect]
     Route: 048
  3. IMIDAPRIL HYDROCHLORIDE [Suspect]
     Route: 048
  4. DOXAZOSIN MESYLATE [Suspect]
     Route: 048
  5. [THERAPY UNSPECIFIED] [Concomitant]
     Route: 065

REACTIONS (3)
  - INTENTIONAL OVERDOSE [None]
  - SHOCK [None]
  - SUICIDE ATTEMPT [None]
